FAERS Safety Report 6347981-7 (Version None)
Quarter: 2009Q3

REPORT INFORMATION
  Report Type: 
  Country: None (occurrence: None)
  Receive Date: 20090910
  Receipt Date: 20090831
  Transmission Date: 20100115
  Serious: Yes (Hospitalization)
  Sender: FDA-Public Use
  Company Number: US-ELI_LILLY_AND_COMPANY-US200908006710

PATIENT
  Sex: Male

DRUGS (7)
  1. FORTEO [Suspect]
     Indication: OSTEOPOROSIS
     Dates: start: 20090101, end: 20090101
  2. BENICAR [Concomitant]
  3. NORVASC [Concomitant]
  4. PRILOSEC [Concomitant]
  5. CELEXA [Concomitant]
  6. VITAMINS NOS [Concomitant]
  7. ZOLOFT [Concomitant]

REACTIONS (3)
  - MALAISE [None]
  - NAUSEA [None]
  - OESOPHAGEAL OPERATION [None]
